FAERS Safety Report 16401633 (Version 1)
Quarter: 2019Q2

REPORT INFORMATION
  Report Type: Spontaneous
  Country: US (occurrence: US)
  Receive Date: 20190606
  Receipt Date: 20190606
  Transmission Date: 20190711
  Serious: Yes (Other)
  Sender: FDA-Public Use
  Company Number: US-PTC THERAPEUTICS, INC.-US-2019PTC000787

PATIENT
  Age: 15 Year
  Sex: Male
  Weight: 94.79 kg

DRUGS (1)
  1. EMFLAZA [Suspect]
     Active Substance: DEFLAZACORT
     Indication: DUCHENNE MUSCULAR DYSTROPHY
     Dosage: 78 MG, QD
     Route: 048
     Dates: start: 20180526

REACTIONS (5)
  - Weight decreased [Unknown]
  - Vomiting [Unknown]
  - Chest discomfort [Unknown]
  - Blood pressure increased [Unknown]
  - Decreased appetite [Unknown]

NARRATIVE: CASE EVENT DATE: 20180526
